FAERS Safety Report 9875623 (Version 1)
Quarter: 2014Q1

REPORT INFORMATION
  Report Type: Spontaneous
  Country: US (occurrence: None)
  Receive Date: 20140205
  Receipt Date: 20140205
  Transmission Date: 20141002
  Serious: No
  Sender: FDA-Public Use
  Company Number: None

PATIENT
  Age: 77 Year
  Sex: Female

DRUGS (1)
  1. AFINITOR [Suspect]
     Indication: BREAST CANCER
     Route: 048
     Dates: start: 20131116

REACTIONS (4)
  - Skin papilloma [None]
  - Skin cancer [None]
  - Dry skin [None]
  - Skin exfoliation [None]
